FAERS Safety Report 23775941 (Version 1)
Quarter: 2024Q2

REPORT INFORMATION
  Report Type: Spontaneous
  Country: US (occurrence: US)
  Receive Date: 20240424
  Receipt Date: 20240424
  Transmission Date: 20240716
  Serious: No
  Sender: FDA-Public Use
  Company Number: US-SANDOZ-SDZ2024US042011

PATIENT
  Sex: Female

DRUGS (2)
  1. OLOPATADINE [Suspect]
     Active Substance: OLOPATADINE
     Indication: Product used for unknown indication
     Dosage: UNK
     Route: 065
  2. PATANOL [Concomitant]
     Active Substance: OLOPATADINE HYDROCHLORIDE
     Indication: Conjunctivitis allergic
     Dosage: UNK (DROPS (UNSPECIFIED))
     Route: 065

REACTIONS (1)
  - Pain [Unknown]
